FAERS Safety Report 6180688-8 (Version None)
Quarter: 2009Q2

REPORT INFORMATION
  Report Type: 
  Country: None (occurrence: None)
  Receive Date: 20090506
  Receipt Date: 20090421
  Transmission Date: 20091009
  Serious: Yes (Death, Hospitalization)
  Sender: FDA-Public Use
  Company Number: JP-ROCHE-622442

PATIENT
  Age: 82 Year
  Sex: Male

DRUGS (16)
  1. DIAZEPAM [Suspect]
     Indication: DRUG USE FOR UNKNOWN INDICATION
     Route: 030
  2. CARVEDILOL [Suspect]
     Route: 048
     Dates: start: 20081225, end: 20090310
  3. PAROXETINE HYDROCHLORIDE [Suspect]
     Indication: DEPRESSION
     Route: 048
     Dates: start: 20090117, end: 20090211
  4. PAROXETINE HYDROCHLORIDE [Suspect]
     Route: 048
     Dates: start: 20090212, end: 20090218
  5. PAROXETINE HYDROCHLORIDE [Suspect]
     Route: 048
     Dates: start: 20090219, end: 20090310
  6. SALMETEROL XINAFOATE INHALER [Suspect]
     Indication: EMPHYSEMA
     Dosage: REPORTED AS SALMETEROL XINOFOATE ACCUHALER (DISKUS). SEREVENT 50
     Route: 055
     Dates: start: 20081204, end: 20090310
  7. FRUSEMIDE [Suspect]
     Route: 048
     Dates: end: 20090310
  8. CLARITHROMYCIN [Suspect]
     Indication: ATRIAL FIBRILLATION
     Route: 048
     Dates: start: 20081222, end: 20090310
  9. THEOPHYLLINE [Suspect]
     Indication: EMPHYSEMA
     Route: 048
     Dates: end: 20090310
  10. DIGOXIN [Suspect]
     Indication: ATRIAL FIBRILLATION
     Route: 048
     Dates: start: 20081222, end: 20090310
  11. SULPIRIDE [Suspect]
     Indication: DEPRESSION
     Route: 048
     Dates: start: 20081224, end: 20090310
  12. VERAPAMIL HYDROCHLORIDE [Suspect]
     Indication: ARRHYTHMIA
     Route: 065
     Dates: end: 20090310
  13. TIOTROPIUM [Suspect]
     Indication: EMPHYSEMA
     Route: 055
     Dates: start: 20081204, end: 20090310
  14. DANTROLENE SODIUM [Concomitant]
  15. SOLDEM [Concomitant]
     Dosage: SOLDEM 3PG
     Dates: start: 20090118, end: 20090310
  16. WARFARIN SODIUM [Concomitant]
     Dates: start: 20081119, end: 20090310

REACTIONS (9)
  - CONVULSION [None]
  - DISSEMINATED INTRAVASCULAR COAGULATION [None]
  - HYPERTHERMIA [None]
  - MULTI-ORGAN FAILURE [None]
  - MUSCULOSKELETAL STIFFNESS [None]
  - NEUROLEPTIC MALIGNANT SYNDROME [None]
  - PYREXIA [None]
  - TACHYCARDIA [None]
  - TONIC CONVULSION [None]
